FAERS Safety Report 25995799 (Version 2)
Quarter: 2025Q4

REPORT INFORMATION
  Report Type: Spontaneous
  Country: SA (occurrence: SA)
  Receive Date: 20251104
  Receipt Date: 20251110
  Transmission Date: 20260119
  Serious: Yes (Life-Threatening, Hospitalization)
  Sender: PFIZER
  Company Number: SA-MLMSERVICE-20251023-PI686215-00270-1

PATIENT
  Age: 50 Year
  Sex: Female

DRUGS (7)
  1. METHYLPREDNISOLONE SODIUM SUCCINATE [Suspect]
     Active Substance: METHYLPREDNISOLONE SODIUM SUCCINATE
     Indication: Asthma
     Dosage: 125 MG
     Route: 042
  2. ALBUTEROL SULFATE\IPRATROPIUM BROMIDE [Suspect]
     Active Substance: ALBUTEROL SULFATE\IPRATROPIUM BROMIDE
     Indication: Asthma
     Dosage: UNK; NEBULIZATIONS
  3. MAGNESIUM SULFATE [Concomitant]
     Active Substance: MAGNESIUM SULFATE
     Indication: Asthma
     Dosage: 2 G OVER 30 MINUTES
  4. SODIUM CHLORIDE [Concomitant]
     Active Substance: SODIUM CHLORIDE
     Indication: Asthma
     Dosage: 500 ML BOLUS OF NORMAL SALINE
  5. SODIUM CHLORIDE [Concomitant]
     Active Substance: SODIUM CHLORIDE
     Dosage: 500 ML OF NORMAL SALINE
  6. OMEPRAZOLE [Concomitant]
     Active Substance: OMEPRAZOLE
     Indication: Dyspepsia
     Dosage: 40 MG
     Route: 042
  7. ACETAMINOPHEN [Concomitant]
     Active Substance: ACETAMINOPHEN
     Indication: Dyspepsia
     Dosage: 1 G
     Route: 042

REACTIONS (4)
  - Diabetic ketoacidosis [Recovering/Resolving]
  - Respiratory distress [Recovered/Resolved]
  - Respiratory alkalosis [Recovering/Resolving]
  - Metabolic acidosis [Recovered/Resolved]
